FAERS Safety Report 5352506-9 (Version None)
Quarter: 2007Q2

REPORT INFORMATION
  Report Type: 
  Country: None (occurrence: None)
  Receive Date: 20070611
  Receipt Date: 20070530
  Transmission Date: 20071010
  Serious: Yes (Other)
  Sender: FDA-Public Use
  Company Number: DE-AMGEN-US225351

PATIENT
  Sex: Male

DRUGS (2)
  1. ENBREL [Suspect]
     Indication: PSORIASIS
     Route: 058
     Dates: start: 20050901, end: 20060301
  2. ENBREL [Suspect]
     Route: 058
     Dates: start: 20061201, end: 20070401

REACTIONS (3)
  - HYPOPHARYNGEAL CANCER [None]
  - LYMPHADENOPATHY [None]
  - SQUAMOUS CELL CARCINOMA [None]
